FAERS Safety Report 7563077-0 (Version None)
Quarter: 2011Q2

REPORT INFORMATION
  Report Type: 
  Country: None (occurrence: None)
  Receive Date: 20110622
  Receipt Date: 20110616
  Transmission Date: 20111010
  Serious: Yes (Other)
  Sender: FDA-Public Use
  Company Number: JP-SANOFI-AVENTIS-2011SA038561

PATIENT
  Age: 68 Year
  Sex: Male

DRUGS (4)
  1. OXALIPLATIN [Suspect]
     Indication: COLON CANCER
     Route: 065
  2. FLUOROURACIL [Concomitant]
     Route: 040
  3. LEUCOVORIN CALCIUM [Suspect]
     Indication: COLON CANCER
     Route: 065
  4. FLUOROURACIL [Concomitant]
     Dosage: CONTINOUS INFUSION
     Route: 065

REACTIONS (1)
  - CEREBRAL INFARCTION [None]
